FAERS Safety Report 20854588 (Version 1)
Quarter: 2022Q2

REPORT INFORMATION
  Report Type: Spontaneous
  Country: US (occurrence: US)
  Receive Date: 20220520
  Receipt Date: 20220520
  Transmission Date: 20220720
  Serious: No
  Sender: FDA-Public Use
  Company Number: US-KYOWAKIRIN-2022BKK006326

PATIENT

DRUGS (1)
  1. CRYSVITA [Suspect]
     Active Substance: BUROSUMAB-TWZA
     Indication: Hypophosphataemia
     Dosage: 10 MG, EVERY 14 DAYS
     Route: 058
     Dates: start: 20220201

REACTIONS (2)
  - Injection site haemorrhage [Unknown]
  - Product administration error [Unknown]

NARRATIVE: CASE EVENT DATE: 20220424
